FAERS Safety Report 6496841-X (Version None)
Quarter: 2009Q4

REPORT INFORMATION
  Report Type: 
  Country: None (occurrence: None)
  Receive Date: 20091125
  Receipt Date: 20090413
  Transmission Date: 20100525
  Serious: Yes (Other)
  Sender: FDA-Public Use
  Company Number: 2009BH006193

PATIENT
  Age: 57 Year
  Sex: Male
  Weight: 91.6 kg

DRUGS (26)
  1. DIANEAL [Suspect]
     Indication: RENAL FAILURE CHRONIC
     Dosage: EVERY DAY; IP
     Route: 033
  2. WARFARIN [Concomitant]
  3. LASIX [Concomitant]
  4. DOXAZOSN [Concomitant]
  5. METOPROLOL [Concomitant]
  6. AMIODARONE [Concomitant]
  7. LANOXIN [Concomitant]
  8. ASPIRIN [Concomitant]
  9. IMDUR [Concomitant]
  10. HUMULIN N [Concomitant]
  11. NOVOLOG [Concomitant]
  12. REGLAN [Concomitant]
  13. FISH OIL [Concomitant]
  14. VYTORIN [Concomitant]
  15. JANUVIA [Concomitant]
  16. HECTOROL [Concomitant]
  17. FOSRENOL [Concomitant]
  18. COQ10 [Concomitant]
  19. FOLBEE PLUS [Concomitant]
  20. TEMAZEPAM [Concomitant]
  21. DIOVAN [Concomitant]
  22. GENTAMICIN [Concomitant]
  23. NITROGLYCERIN COMP. [Concomitant]
  24. PRILOSEC [Concomitant]
  25. SENSIPAR [Concomitant]
  26. EPOGEN [Concomitant]

REACTIONS (1)
  - PERITONITIS [None]
